FAERS Safety Report 5574801-0 (Version None)
Quarter: 2007Q4

REPORT INFORMATION
  Report Type: 
  Country: None (occurrence: None)
  Receive Date: 20071226
  Receipt Date: 20071226
  Transmission Date: 20080405
  Serious: Yes (Hospitalization)
  Sender: FDA-Public Use
  Company Number: None

PATIENT
  Age: 72 Year
  Sex: Male

DRUGS (2)
  1. ENOXAPARIN SODIUM [Suspect]
     Indication: CARDIOVASCULAR DISORDER
     Dosage: 100MG BID SQ
     Route: 058
     Dates: start: 20070922, end: 20070925
  2. ENOXAPARIN SODIUM [Suspect]
     Indication: SURGERY
     Dosage: 100MG BID SQ
     Route: 058
     Dates: start: 20070922, end: 20070925

REACTIONS (4)
  - BLOOD CREATININE INCREASED [None]
  - HAEMATOMA [None]
  - MEDICAL DEVICE SITE REACTION [None]
  - PLATELET COUNT DECREASED [None]
